FAERS Safety Report 25411197 (Version 1)
Quarter: 2025Q2

REPORT INFORMATION
  Report Type: Spontaneous
  Country: US (occurrence: US)
  Receive Date: 20250609
  Receipt Date: 20250609
  Transmission Date: 20250717
  Serious: Yes (Death, Other)
  Sender: KYOWA
  Company Number: US-KYOWAKIRIN-2025KK010894

PATIENT

DRUGS (1)
  1. NOURIANZ [Suspect]
     Active Substance: ISTRADEFYLLINE
     Indication: Parkinson^s disease
     Dosage: 20 MG, QD (1 TABLET BY MOUTH, IN THE MORNING)
     Route: 048

REACTIONS (1)
  - Death [Fatal]

NARRATIVE: CASE EVENT DATE: 20250515
